FAERS Safety Report 7292910-5 (Version None)
Quarter: 2011Q1

REPORT INFORMATION
  Report Type: 
  Country: None (occurrence: None)
  Receive Date: 20110209
  Receipt Date: 20110209
  Transmission Date: 20110831
  Serious: Yes (Disabling, Other)
  Sender: FDA-Public Use
  Company Number: None

PATIENT
  Age: 48 Year
  Sex: Female
  Weight: 56.6996 kg

DRUGS (2)
  1. LATISSE [Suspect]
     Indication: MADAROSIS
     Dosage: 1X DAY OPHTHALMIC
     Route: 047
     Dates: start: 20100601
  2. LATISSE [Suspect]
     Indication: CHEMOTHERAPY
     Dosage: 1X DAY OPHTHALMIC
     Route: 047
     Dates: start: 20100601

REACTIONS (3)
  - TRICHIASIS [None]
  - PAIN [None]
  - IMPAIRED WORK ABILITY [None]
